FAERS Safety Report 24140128 (Version 3)
Quarter: 2024Q3

REPORT INFORMATION
  Report Type: Spontaneous
  Country: SK (occurrence: SK)
  Receive Date: 20240726
  Receipt Date: 20240809
  Transmission Date: 20241017
  Serious: Yes (Other)
  Sender: GLAXOSMITHKLINE
  Company Number: None

PATIENT

DRUGS (8)
  1. LAMOTRIGINE [Suspect]
     Active Substance: LAMOTRIGINE
     Indication: Epilepsy
     Dosage: 150 MG, QD
     Route: 065
  2. LAMOTRIGINE [Suspect]
     Active Substance: LAMOTRIGINE
     Indication: Epilepsy
     Dosage: UNK
     Route: 065
  3. ZONISAMIDE [Suspect]
     Active Substance: ZONISAMIDE
     Indication: Epilepsy
     Dosage: 200 MG, QD
     Route: 065
  4. ESCITALOPRAM [Suspect]
     Active Substance: ESCITALOPRAM OXALATE
     Indication: Product used for unknown indication
     Dosage: UNK
     Route: 065
  5. LACOSAMIDE [Suspect]
     Active Substance: LACOSAMIDE
     Indication: Epilepsy
     Dosage: 200 MG, QD
     Route: 065
  6. CENOBAMATE [Concomitant]
     Active Substance: CENOBAMATE
     Indication: Epilepsy
     Dosage: 150 MG
     Route: 065
     Dates: start: 202208
  7. CENOBAMATE [Concomitant]
     Active Substance: CENOBAMATE
     Dosage: 200 MG, QD
     Route: 065
     Dates: start: 202208
  8. CENOBAMATE [Concomitant]
     Active Substance: CENOBAMATE
     Dosage: 300 MG, QD
     Route: 065

REACTIONS (7)
  - Condition aggravated [Recovered/Resolved]
  - Seizure [Recovered/Resolved]
  - Therapeutic product effect incomplete [Recovered/Resolved]
  - Change in seizure presentation [Recovered/Resolved]
  - Therapy interrupted [Unknown]
  - Anxiety [Recovered/Resolved]
  - Drug interaction [Recovered/Resolved]
